FAERS Safety Report 5857362-8 (Version None)
Quarter: 2008Q3

REPORT INFORMATION
  Report Type: 
  Country: None (occurrence: None)
  Receive Date: 20080825
  Receipt Date: 20080825
  Transmission Date: 20090109
  Serious: No
  Sender: FDA-Public Use
  Company Number: None

PATIENT
  Age: 47 Year
  Sex: Female

DRUGS (19)
  1. LUVOX [Suspect]
     Dates: start: 19990901, end: 20060724
  2. TEGRETOL [Suspect]
     Dates: start: 19900501, end: 20060724
  3. ABILIFY [Concomitant]
  4. CALCIUM CARBONATE [Concomitant]
  5. IRON SULFATETHIAMIN COMPOUND TAB [Concomitant]
  6. M.V.I. [Concomitant]
  7. COLACE [Concomitant]
  8. PROTONIX [Concomitant]
  9. LEVOXYL [Concomitant]
  10. KLONOPIN [Concomitant]
  11. LACTULOSE [Concomitant]
  12. ACTIGALL [Concomitant]
  13. PROTONIX [Concomitant]
  14. LEVOXYL [Concomitant]
  15. ZANTAC [Concomitant]
  16. CLARITIN [Concomitant]
  17. QUESTRAN [Concomitant]
  18. ENSURE [Concomitant]
  19. SARNA LOTION [Concomitant]

REACTIONS (9)
  - AMMONIA INCREASED [None]
  - CHOLANGITIS SCLEROSING [None]
  - COELIAC DISEASE [None]
  - CONFUSIONAL STATE [None]
  - HEPATIC ENCEPHALOPATHY [None]
  - HEPATOTOXICITY [None]
  - LIVER INJURY [None]
  - NO THERAPEUTIC RESPONSE [None]
  - URINARY TRACT INFECTION [None]
